FAERS Safety Report 23167924 (Version 2)
Quarter: 2023Q4

REPORT INFORMATION
  Report Type: Spontaneous
  Country: VN (occurrence: VN)
  Receive Date: 20231109
  Receipt Date: 20231110
  Transmission Date: 20240110
  Serious: Yes (Life-Threatening, Other)
  Sender: FDA-Public Use
  Company Number: VN-009507513-2311VNM002481

PATIENT
  Age: 40 Year
  Sex: Male
  Weight: 60 kg

DRUGS (6)
  1. BRIDION [Suspect]
     Active Substance: SUGAMMADEX
     Indication: Neuromuscular blockade reversal
     Dosage: 100 MILLIGRAM, DOSE 2MG/KG, FREQUENCY 1 TIMES
     Dates: start: 20231103, end: 20231103
  2. BRIDION [Suspect]
     Active Substance: SUGAMMADEX
     Dosage: AFTER 1 HR 100 MG, DOSE 2MG/KG, FREQUENCY 1 TIMES
     Dates: start: 20231103, end: 20231103
  3. ROCURONIUM BROMIDE [Suspect]
     Active Substance: ROCURONIUM BROMIDE
     Dosage: 50MG+BOLUS
     Dates: start: 20231103, end: 20231103
  4. SEVOFLURANE [Concomitant]
     Active Substance: SEVOFLURANE
     Dosage: UNK
     Dates: start: 20231103
  5. MORPHINE [Concomitant]
     Active Substance: MORPHINE
     Dosage: UNK
     Dates: start: 20231103
  6. FENTANYL [Concomitant]
     Active Substance: FENTANYL\FENTANYL CITRATE
     Dosage: UNK
     Dates: start: 20231103

REACTIONS (3)
  - Respiratory failure [Recovered/Resolved]
  - Therapeutic response decreased [Recovered/Resolved]
  - Recurrence of neuromuscular blockade [Unknown]

NARRATIVE: CASE EVENT DATE: 20231103
